FAERS Safety Report 5736662-6 (Version None)
Quarter: 2008Q2

REPORT INFORMATION
  Report Type: 
  Country: None (occurrence: None)
  Receive Date: 20080513
  Receipt Date: 20080502
  Transmission Date: 20081010
  Serious: Yes (Death, Hospitalization)
  Sender: FDA-Public Use
  Company Number: FR-PFIZER INC-2006098968

PATIENT
  Sex: Female

DRUGS (18)
  1. SU-011,248 [Suspect]
     Indication: RENAL CANCER
     Route: 048
  2. PREDNISOLONE [Concomitant]
     Indication: ASTHENIA
  3. ALPRAZOLAM [Concomitant]
     Indication: ANXIETY
     Dates: start: 20060215
  4. ZOPICLONE [Concomitant]
     Indication: INSOMNIA
     Dates: start: 20060215
  5. OMEPRAZOLE [Concomitant]
     Indication: GASTROOESOPHAGEAL REFLUX DISEASE
     Dates: start: 20060215
  6. ACENOCOUMAROL [Concomitant]
     Indication: THROMBOSIS
     Dates: start: 20060215
  7. ATENOLOL [Concomitant]
  8. TRIMEBUTINE [Concomitant]
     Indication: GASTROINTESTINAL PAIN
     Dates: start: 20060215, end: 20060502
  9. LACTULOSE [Concomitant]
     Indication: CONSTIPATION
     Dates: start: 20060215, end: 20060502
  10. ACETAMINOPHEN [Concomitant]
     Indication: BACK PAIN
     Dates: start: 20060321, end: 20060502
  11. DEXTROPROPOXYPHENE/ PARACETAMOL [Concomitant]
     Indication: BACK PAIN
     Dates: start: 20060215, end: 20060502
  12. DOMPERIDONE [Concomitant]
     Indication: NAUSEA
     Dates: start: 20060420
  13. CODEINE PHOSPHATE AND ACETAMINOPHEN [Concomitant]
     Indication: BACK PAIN
     Dates: start: 20060503
  14. ACETAMINOPHEN [Concomitant]
     Dates: start: 20060503
  15. MACROGOL [Concomitant]
     Indication: CONSTIPATION
     Dates: start: 20060503
  16. TRAMADOL HCL [Concomitant]
     Indication: BACK PAIN
     Dates: start: 20060503
  17. PHLOROGLUCINOL [Concomitant]
     Indication: GASTROINTESTINAL PAIN
     Dates: start: 20060503
  18. SODIUM BICARBONATE [Concomitant]
     Indication: CONSTIPATION

REACTIONS (1)
  - CEREBRAL HAEMATOMA [None]
